FAERS Safety Report 7718145-7 (Version None)
Quarter: 2011Q3

REPORT INFORMATION
  Report Type: 
  Country: None (occurrence: None)
  Receive Date: 20110830
  Receipt Date: 20110819
  Transmission Date: 20111222
  Serious: Yes (Hospitalization)
  Sender: FDA-Public Use
  Company Number: US-UCBSA-039592

PATIENT
  Age: 80 Year
  Sex: Female

DRUGS (1)
  1. CIMZIA [Suspect]
     Dosage: 1 DOSE
     Route: 058

REACTIONS (1)
  - PNEUMONIA [None]
